FAERS Safety Report 8589956-3 (Version None)
Quarter: 2012Q3

REPORT INFORMATION
  Report Type: 
  Country: None (occurrence: None)
  Receive Date: 20120813
  Receipt Date: 20120807
  Transmission Date: 20120928
  Serious: Yes (Death)
  Sender: FDA-Public Use
  Company Number: JP-AMGEN-JPNCT2012050233

PATIENT
  Age: 71 Year
  Sex: Female
  Weight: 56 kg

DRUGS (16)
  1. ATELEC [Concomitant]
     Dosage: UNCERTAINTY
     Route: 048
  2. DARBEPOETIN ALFA [Suspect]
     Dosage: 30 MUG, UNK
     Route: 040
     Dates: start: 20111111, end: 20111111
  3. DARBEPOETIN ALFA [Suspect]
     Dosage: 40 MUG, UNK
     Route: 040
     Dates: start: 20111209, end: 20111209
  4. IRON SUCROSE [Concomitant]
     Dosage: UNCERTAINTY
     Route: 065
  5. CARVEDILOL [Concomitant]
     Dosage: UNCERTAINTY
     Route: 048
  6. LIVALO [Concomitant]
     Dosage: UNCERTAINTY
     Route: 048
  7. ASPIRIN [Concomitant]
     Dosage: UNCERTAINTY
     Route: 048
  8. LOXONIN [Concomitant]
     Dosage: UNCERTAINTY
     Route: 048
  9. ALDOMET [Concomitant]
     Dosage: UNCERTAINTY
     Route: 048
  10. DAIOKANZOTO [Concomitant]
     Dosage: UNCERTAINTY
     Route: 048
  11. DARBEPOETIN ALFA [Suspect]
     Indication: NEPHROGENIC ANAEMIA
     Dosage: 30 MUG, QD
     Route: 040
     Dates: start: 20111005, end: 20111005
  12. LENDORMIN DAINIPPO [Concomitant]
     Dosage: UNCERTAINTY
     Route: 048
  13. OLMESARTAN MEDOXOMIL [Concomitant]
     Dosage: UNCERTAINTY
     Route: 048
  14. SODIUM BICARBONATE [Concomitant]
     Dosage: UNCERTAINTY
     Route: 048
  15. LANSOPRAZOLE [Concomitant]
     Dosage: UNCERTAINTY
     Route: 048
  16. LASIX [Concomitant]
     Indication: DIABETIC NEPHROPATHY
     Dosage: UNCERTAINTY
     Route: 048

REACTIONS (1)
  - SUDDEN DEATH [None]
